FAERS Safety Report 18714191 (Version 1)
Quarter: 2021Q1

REPORT INFORMATION
  Report Type: Spontaneous
  Country: US (occurrence: US)
  Receive Date: 20210108
  Receipt Date: 20210108
  Transmission Date: 20210419
  Serious: Yes (Hospitalization)
  Sender: FDA-Public Use
  Company Number: US-UNICHEM PHARMACEUTICALS (USA) INC-UCM202012-001546

PATIENT
  Age: 59 Year
  Sex: Male

DRUGS (2)
  1. BACLOFEN. [Suspect]
     Active Substance: BACLOFEN
     Indication: HEMIPARESIS
     Dosage: UNKNOWN
     Route: 037
  2. LORAZEPAM. [Concomitant]
     Active Substance: LORAZEPAM
     Indication: SEIZURE
     Dosage: UNKNOWN
     Route: 042

REACTIONS (5)
  - Hypotension [Recovering/Resolving]
  - Respiratory failure [Recovering/Resolving]
  - Encephalopathy [Recovering/Resolving]
  - Status epilepticus [Recovering/Resolving]
  - Toxicity to various agents [Recovering/Resolving]
